FAERS Safety Report 6218228-7 (Version None)
Quarter: 2009Q2

REPORT INFORMATION
  Report Type: 
  Country: None (occurrence: None)
  Receive Date: 20090604
  Receipt Date: 20090604
  Transmission Date: 20091009
  Serious: Yes (Life-Threatening, Hospitalization)
  Sender: FDA-Public Use
  Company Number: None

PATIENT
  Age: 58 Year
  Sex: Female
  Weight: 57 kg

DRUGS (6)
  1. GOLYTELY [Suspect]
     Indication: COLONOSCOPY
     Dosage: 4 L PRIOR TO GI EXAM PO
     Route: 048
     Dates: start: 20090519, end: 20090519
  2. BALSALAZIDE [Concomitant]
  3. DULOXETINE HYDROCHLORIDE [Concomitant]
  4. CYMBALTA [Concomitant]
  5. RABEPRAZOLE SODIUM [Concomitant]
  6. SODIUM PHOSPHATE [Concomitant]

REACTIONS (8)
  - ASPIRATION [None]
  - BLOOD MAGNESIUM DECREASED [None]
  - BLOOD POTASSIUM DECREASED [None]
  - BLOOD SODIUM DECREASED [None]
  - CONVULSION [None]
  - FAECAL INCONTINENCE [None]
  - LOSS OF CONSCIOUSNESS [None]
  - SUBARACHNOID HAEMORRHAGE [None]
